FAERS Safety Report 17433840 (Version 1)
Quarter: 2020Q1

REPORT INFORMATION
  Report Type: Spontaneous
  Country: FR (occurrence: FR)
  Receive Date: 20200219
  Receipt Date: 20200219
  Transmission Date: 20200409
  Serious: Yes (Other)
  Sender: FDA-Public Use
  Company Number: FR-ABBVIE-19P-056-2849078-00

PATIENT
  Sex: Female

DRUGS (1)
  1. ENANTONE LP [Suspect]
     Active Substance: LEUPROLIDE ACETATE
     Indication: BREAST CANCER
     Dosage: 11.25 MILLIGRAM, Q3MONTHS
     Route: 051

REACTIONS (7)
  - Injection site inflammation [Unknown]
  - Injection site haemorrhage [Unknown]
  - Injection site haematoma [Unknown]
  - Injection site swelling [Not Recovered/Not Resolved]
  - Off label use [Unknown]
  - Injection site induration [Not Recovered/Not Resolved]
  - Breast cancer [Unknown]

NARRATIVE: CASE EVENT DATE: 20190628
